FAERS Safety Report 7612287-2 (Version None)
Quarter: 2011Q3

REPORT INFORMATION
  Report Type: 
  Country: None (occurrence: None)
  Receive Date: 20110715
  Receipt Date: 20110705
  Transmission Date: 20111222
  Serious: Yes (Hospitalization, Disabling, Other)
  Sender: FDA-Public Use
  Company Number: US-MERCK-0609USA01253

PATIENT
  Age: 62 Year
  Sex: Female
  Weight: 50 kg

DRUGS (10)
  1. ZOLOFT [Concomitant]
     Route: 065
  2. FOSAMAX [Suspect]
     Indication: OSTEOPOROSIS
     Route: 048
     Dates: start: 19970710, end: 19980315
  3. FOSAMAX [Suspect]
     Route: 048
     Dates: start: 19981207, end: 20060224
  4. VITAMINS (UNSPECIFIED) [Concomitant]
     Route: 065
  5. DELESTROGEN [Concomitant]
     Route: 065
  6. VIOXX [Concomitant]
     Indication: ARTHRITIS
     Route: 065
  7. FOSAMAX [Suspect]
     Route: 048
     Dates: start: 19981207, end: 20060224
  8. AMBIEN [Concomitant]
     Route: 048
  9. SYNTHROID [Concomitant]
     Route: 048
  10. FOSAMAX [Suspect]
     Indication: OSTEOPENIA
     Route: 048
     Dates: start: 19970710, end: 19980315

REACTIONS (66)
  - ABDOMINAL ADHESIONS [None]
  - BLADDER MASS [None]
  - URINARY RETENTION [None]
  - FEMUR FRACTURE [None]
  - DEMENTIA [None]
  - DEVICE RELATED INFECTION [None]
  - ORAL INFECTION [None]
  - LETHARGY [None]
  - HYPONATRAEMIA [None]
  - STRESS FRACTURE [None]
  - RADICULOPATHY [None]
  - PERNICIOUS ANAEMIA [None]
  - PANCREATIC DISORDER [None]
  - ANGIOEDEMA [None]
  - MULTIPLE MYELOMA [None]
  - HAEMORRHOIDS [None]
  - SPINAL OSTEOARTHRITIS [None]
  - PSEUDOMONAS INFECTION [None]
  - PERIPHERAL VASCULAR DISORDER [None]
  - MALAISE [None]
  - DENTAL FISTULA [None]
  - DEEP VEIN THROMBOSIS [None]
  - BILIARY DILATATION [None]
  - AORTIC ARTERIOSCLEROSIS [None]
  - OSTEONECROSIS OF JAW [None]
  - CHRONIC OBSTRUCTIVE PULMONARY DISEASE [None]
  - DRUG DEPENDENCE [None]
  - ASTHENIA [None]
  - ABSCESS [None]
  - ALCOHOL USE [None]
  - BRONCHITIS [None]
  - GALLBLADDER ENLARGEMENT [None]
  - FISTULA DISCHARGE [None]
  - VASCULAR CALCIFICATION [None]
  - CEREBRAL ISCHAEMIA [None]
  - DECUBITUS ULCER [None]
  - FALL [None]
  - OSTEOMYELITIS [None]
  - INTESTINAL DILATATION [None]
  - GASTROOESOPHAGEAL REFLUX DISEASE [None]
  - SINUSITIS [None]
  - NASOPHARYNGITIS [None]
  - CATARACT [None]
  - WRIST FRACTURE [None]
  - CONFUSIONAL STATE [None]
  - ILIAC ARTERY STENOSIS [None]
  - HEPATIC CIRRHOSIS [None]
  - OTITIS EXTERNA [None]
  - DYSPNOEA EXERTIONAL [None]
  - AORTIC CALCIFICATION [None]
  - ARTHRALGIA [None]
  - DILATATION INTRAHEPATIC DUCT ACQUIRED [None]
  - PERIODONTAL DISEASE [None]
  - COUGH [None]
  - ACTINOMYCOTIC SKIN INFECTION [None]
  - NECK PAIN [None]
  - ACTINOMYCOSIS [None]
  - RADIUS FRACTURE [None]
  - PUBIS FRACTURE [None]
  - JAW FRACTURE [None]
  - BLOOD ALKALINE PHOSPHATASE INCREASED [None]
  - FISTULA [None]
  - WEIGHT DECREASED [None]
  - UPPER RESPIRATORY TRACT INFECTION [None]
  - MYALGIA [None]
  - DIABETES MELLITUS [None]
